FAERS Safety Report 9093628 (Version 1)
Quarter: 2013Q1

REPORT INFORMATION
  Report Type: Spontaneous
  Country: US (occurrence: None)
  Receive Date: 20130213
  Receipt Date: 20130213
  Transmission Date: 20140127
  Serious: Yes (Other)
  Sender: FDA-Public Use
  Company Number: None

PATIENT
  Sex: Female

DRUGS (1)
  1. AMLODIPINE/BENAZEPRIL [Suspect]
     Indication: HYPERTENSION
     Dates: start: 201110

REACTIONS (1)
  - Gingival hyperplasia [None]
